FAERS Safety Report 8240353-X (Version None)
Quarter: 2012Q1

REPORT INFORMATION
  Report Type: 
  Country: None (occurrence: None)
  Receive Date: 20120328
  Receipt Date: 20120320
  Transmission Date: 20120608
  Serious: Yes (Other)
  Sender: FDA-Public Use
  Company Number: CA-BRISTOL-MYERS SQUIBB COMPANY-16351181

PATIENT
  Age: 60 Year
  Sex: Male

DRUGS (2)
  1. ABACAVIR SULFATE/LAMIVUDINE [Suspect]
     Indication: HIV INFECTION
  2. REYATAZ [Suspect]
     Indication: HIV INFECTION

REACTIONS (3)
  - HAEMATURIA [None]
  - BLOOD CREATININE INCREASED [None]
  - NEPHROLITHIASIS [None]
